FAERS Safety Report 20873427 (Version 1)
Quarter: 2022Q2

REPORT INFORMATION
  Report Type: Spontaneous
  Country: ES (occurrence: None)
  Receive Date: 20220525
  Receipt Date: 20220525
  Transmission Date: 20220721
  Serious: Yes (Hospitalization)
  Sender: FDA-Public Use
  Company Number: 2022A197297

PATIENT
  Age: 85 Year
  Sex: Female

DRUGS (2)
  1. OMEPRAZOLE [Suspect]
     Active Substance: OMEPRAZOLE
     Indication: Abdominal pain upper
     Route: 065
  2. DABIGATRAN [Concomitant]
     Active Substance: DABIGATRAN
     Indication: Anticoagulant therapy
     Route: 065

REACTIONS (3)
  - Ulcer haemorrhage [Unknown]
  - Condition aggravated [Unknown]
  - Prescription drug used without a prescription [Unknown]
